FAERS Safety Report 9466953 (Version 2)
Quarter: 2013Q3

REPORT INFORMATION
  Report Type: Spontaneous
  Country: DK (occurrence: NL)
  Receive Date: 20130820
  Receipt Date: 20130904
  Transmission Date: 20140515
  Serious: Yes (Congenital Anomaly)
  Sender: FDA-Public Use
  Company Number: NL-FRI-1000047987

PATIENT
  Sex: 0

DRUGS (1)
  1. LEXAPRO [Suspect]
     Indication: PANIC DISORDER
     Dosage: 10 MG
     Route: 064

REACTIONS (2)
  - Brain malformation [Unknown]
  - Foetal exposure during pregnancy [Unknown]
